FAERS Safety Report 9790624 (Version 1)
Quarter: 2013Q4

REPORT INFORMATION
  Report Type: Spontaneous
  Country: US (occurrence: US)
  Receive Date: 20131231
  Receipt Date: 20131231
  Transmission Date: 20140711
  Serious: Yes (Hospitalization)
  Sender: FDA-Public Use
  Company Number: US-VIIV HEALTHCARE LIMITED-A1054789A

PATIENT
  Sex: Male

DRUGS (12)
  1. EPZICOM [Suspect]
     Indication: HIV INFECTION
     Dosage: 1TAB PER DAY
     Route: 048
     Dates: start: 20131205
  2. ACYCLOVIR [Concomitant]
  3. MULTIVITAMIN [Concomitant]
  4. DOLUTEGRAVIR [Concomitant]
  5. GLUCOSAMINE CHONDROITIN [Concomitant]
  6. CALCIUM + MAGNESIUM + ZINC [Concomitant]
  7. CELLCEPT [Concomitant]
  8. PERCOCET [Concomitant]
  9. PROTONIX [Concomitant]
  10. DELTASONE [Concomitant]
  11. SEPTRA DS/BACTRIM [Concomitant]
  12. PROGRAF [Concomitant]

REACTIONS (2)
  - Blood creatinine increased [Unknown]
  - Adverse event [Unknown]
